FAERS Safety Report 9349990 (Version 1)
Quarter: 2013Q2

REPORT INFORMATION
  Report Type: Spontaneous
  Country: GB (occurrence: GB)
  Receive Date: 20130614
  Receipt Date: 20130614
  Transmission Date: 20140414
  Serious: Yes (Hospitalization, Other)
  Sender: FDA-Public Use
  Company Number: PHFR2013GB002416

PATIENT
  Age: 54 Year
  Sex: Male
  Weight: 77 kg

DRUGS (9)
  1. CLOZARIL [Suspect]
     Dosage: 100 MG, UNK
     Route: 048
     Dates: start: 20130325, end: 20130406
  2. CLOZARIL [Suspect]
     Dosage: UNK
  3. DEPAKOTE [Concomitant]
     Dosage: 2 G, QD
     Route: 048
  4. SUSTANON 250 [Concomitant]
     Dosage: 250 MG, UNK
     Route: 048
  5. VENLAFAXIN [Concomitant]
     Dosage: 275 MG, UNK
     Route: 048
  6. FOLIC ACID [Concomitant]
     Dosage: 5 MG, OD
     Route: 048
  7. MULTIVIT [Concomitant]
     Dosage: 1 DF, BID
     Route: 048
  8. TAMSULOSIN [Concomitant]
     Dosage: 400 MG, OD
     Route: 048
  9. MOCLOBEMIDE [Concomitant]
     Dosage: UNK
     Dates: start: 20130507

REACTIONS (2)
  - Biliary sepsis [Recovered/Resolved]
  - Infection [Unknown]
